FAERS Safety Report 19041444 (Version 1)
Quarter: 2021Q1

REPORT INFORMATION
  Report Type: Report from Study
  Country: GB (occurrence: GB)
  Receive Date: 20210322
  Receipt Date: 20210322
  Transmission Date: 20210420
  Serious: Yes (Life-Threatening, Hospitalization)
  Sender: FDA-Public Use
  Company Number: GB-TAKEDA-GB201721585

PATIENT

DRUGS (9)
  1. IDURSULFASE [Suspect]
     Active Substance: IDURSULFASE
     Dosage: 0.48 MG/KG, 1X/WEEK
     Route: 065
     Dates: start: 20070627
  2. IDURSULFASE [Suspect]
     Active Substance: IDURSULFASE
     Dosage: 0.5 MG/KG, 1X/WEEK
     Route: 065
     Dates: start: 20081210
  3. IDURSULFASE [Suspect]
     Active Substance: IDURSULFASE
     Dosage: 0.34 MG/KG, 1X/WEEK
     Route: 065
     Dates: start: 20080716
  4. IDURSULFASE [Suspect]
     Active Substance: IDURSULFASE
     Dosage: 0.33 MG/KG, 1X/WEEK
     Route: 065
     Dates: start: 20081126
  5. IDURSULFASE [Suspect]
     Active Substance: IDURSULFASE
     Indication: MUCOPOLYSACCHARIDOSIS II
     Dosage: 0.45 MG/KG, 1X/WEEK
     Route: 065
     Dates: start: 20121217
  6. IDURSULFASE [Suspect]
     Active Substance: IDURSULFASE
     Dosage: 0.36 MG/KG, 1X/WEEK
     Route: 065
     Dates: start: 20080331
  7. IDURSULFASE [Suspect]
     Active Substance: IDURSULFASE
     Dosage: 0.36 MG/KG, 1X/WEEK
     Route: 065
     Dates: start: 20080924
  8. IDURSULFASE [Suspect]
     Active Substance: IDURSULFASE
     Dosage: 0.4 MG/KG, 1X/WEEK
     Route: 065
     Dates: start: 20070912
  9. IDURSULFASE [Suspect]
     Active Substance: IDURSULFASE
     Dosage: 0.48 MG/KG, 1X/WEEK
     Route: 065
     Dates: start: 20071205

REACTIONS (3)
  - Staphylococcal infection [Recovered/Resolved]
  - Metapneumovirus infection [Recovered/Resolved]
  - Sepsis [Recovered/Resolved with Sequelae]

NARRATIVE: CASE EVENT DATE: 20141028
